FAERS Safety Report 23763654 (Version 1)
Quarter: 2024Q2

REPORT INFORMATION
  Report Type: Report from Study
  Country: CA (occurrence: CA)
  Receive Date: 20240419
  Receipt Date: 20240419
  Transmission Date: 20240716
  Serious: Yes (Hospitalization, Other)
  Sender: FDA-Public Use
  Company Number: CA-HLS-202201019

PATIENT
  Age: 15 Year
  Sex: Female

DRUGS (4)
  1. CLOZARIL [Suspect]
     Active Substance: CLOZAPINE
     Indication: Product used for unknown indication
     Dosage: 100 MG TABLET (300 MG BY MOUTH)
     Route: 048
     Dates: start: 20220517
  2. ethinyl estradiol / desogestrel [Concomitant]
     Indication: Product used for unknown indication
     Dosage: 1 TAB BY MOUTH EVERY MORNING
     Route: 048
  3. ASCORBIC ACID [Concomitant]
     Active Substance: ASCORBIC ACID
     Indication: Product used for unknown indication
     Dosage: 500 MG BY MOUTH EVERY BEDTIME
     Route: 048
  4. FERROUS FUMARATE [Concomitant]
     Active Substance: FERROUS FUMARATE
     Indication: Product used for unknown indication
     Dosage: 300 MG BY MOUTH
     Route: 048

REACTIONS (15)
  - Agitation [Unknown]
  - Decreased appetite [Unknown]
  - Hallucination, auditory [Unknown]
  - Delusion [Unknown]
  - Post-traumatic stress disorder [Unknown]
  - Haemoglobin decreased [Unknown]
  - Intellectual disability [Unknown]
  - Blood iron decreased [Unknown]
  - Transferrin saturation decreased [Unknown]
  - Mean cell haemoglobin concentration decreased [Unknown]
  - Off label use [Unknown]
  - Paranoia [Unknown]
  - Treatment noncompliance [Unknown]
  - Red cell distribution width increased [Unknown]
  - Insomnia [Unknown]

NARRATIVE: CASE EVENT DATE: 20220517
